FAERS Safety Report 25034310 (Version 1)
Quarter: 2025Q1

REPORT INFORMATION
  Report Type: Spontaneous
  Country: CA (occurrence: CA)
  Receive Date: 20250304
  Receipt Date: 20250304
  Transmission Date: 20250409
  Serious: Yes (Other)
  Sender: INTERCEPT PHARMACEUTICALS
  Company Number: CA-ADVANZ PHARMA-202410008741

PATIENT
  Age: 54 Year
  Sex: Female

DRUGS (4)
  1. OCALIVA [Suspect]
     Active Substance: OBETICHOLIC ACID
     Indication: Primary biliary cholangitis
     Route: 048
     Dates: start: 20200530
  2. OCALIVA [Suspect]
     Active Substance: OBETICHOLIC ACID
     Route: 048
  3. LUVOX [Concomitant]
     Active Substance: FLUVOXAMINE MALEATE
  4. URSO [Concomitant]
     Active Substance: URSODIOL

REACTIONS (12)
  - Intestinal obstruction [Unknown]
  - Hypothyroidism [Unknown]
  - Anxiety [Unknown]
  - Thyroid disorder [Unknown]
  - Nasal pruritus [Unknown]
  - Dry skin [Unknown]
  - Hypersensitivity [Unknown]
  - Hepatic enzyme increased [Unknown]
  - Blood thyroid stimulating hormone increased [Unknown]
  - Eye pruritus [Unknown]
  - Pruritus [Not Recovered/Not Resolved]
  - Drug ineffective [Unknown]
